FAERS Safety Report 8871196 (Version 20)
Quarter: 2017Q2

REPORT INFORMATION
  Report Type: Report from Study
  Country: CA (occurrence: CA)
  Receive Date: 20121029
  Receipt Date: 20170403
  Transmission Date: 20170830
  Serious: Yes (Hospitalization, Other)
  Sender: FDA-Public Use
  Company Number: CA-ROCHE-1113343

PATIENT
  Age: 60 Year
  Sex: Female
  Weight: 100 kg

DRUGS (13)
  1. METHOTREXATE. [Suspect]
     Active Substance: METHOTREXATE
     Indication: RHEUMATOID ARTHRITIS
     Route: 065
  2. ACTEMRA [Suspect]
     Active Substance: TOCILIZUMAB
     Indication: RHEUMATOID ARTHRITIS
     Dosage: MOST RECENT DOSE ON 05/JUN/2013
     Route: 042
     Dates: start: 20120801, end: 20170308
  3. ACTEMRA [Suspect]
     Active Substance: TOCILIZUMAB
     Route: 042
     Dates: start: 20160414
  4. RITUXAN [Suspect]
     Active Substance: RITUXIMAB
     Indication: RHEUMATOID ARTHRITIS
     Dosage: DAY1 AND DAY 15.
     Route: 042
     Dates: start: 20120404, end: 20120418
  5. CLONIDINE. [Concomitant]
     Active Substance: CLONIDINE
  6. CELEBREX [Suspect]
     Active Substance: CELECOXIB
     Indication: RHEUMATOID ARTHRITIS
     Route: 065
  7. COUMADIN [Concomitant]
     Active Substance: WARFARIN SODIUM
  8. FUROSEMIDE. [Concomitant]
     Active Substance: FUROSEMIDE
  9. CITALOPRAM [Concomitant]
     Active Substance: CITALOPRAM HYDROBROMIDE
  10. TYLENOL WITH CODEINE [Suspect]
     Active Substance: ACETAMINOPHEN\CODEINE PHOSPHATE
     Indication: PRODUCT USED FOR UNKNOWN INDICATION
     Route: 065
  11. PREDNISONE. [Concomitant]
     Active Substance: PREDNISONE
  12. GRAVOL [Concomitant]
     Active Substance: DIMENHYDRINATE
     Route: 065
  13. FOLIC ACID. [Concomitant]
     Active Substance: FOLIC ACID

REACTIONS (26)
  - Fibromyalgia [Recovering/Resolving]
  - Upper limb fracture [Recovering/Resolving]
  - Aphthous ulcer [Not Recovered/Not Resolved]
  - Influenza [Recovered/Resolved]
  - Arthropod bite [Unknown]
  - Headache [Not Recovered/Not Resolved]
  - Fall [Unknown]
  - Renal failure [Recovered/Resolved]
  - Oxygen saturation decreased [Not Recovered/Not Resolved]
  - Viral upper respiratory tract infection [Not Recovered/Not Resolved]
  - Hypotension [Unknown]
  - Drug ineffective [Unknown]
  - Fall [Unknown]
  - Oral pruritus [Recovered/Resolved]
  - Arthralgia [Not Recovered/Not Resolved]
  - Infected bite [Unknown]
  - Heart rate increased [Unknown]
  - Sinusitis [Recovering/Resolving]
  - Weight decreased [Unknown]
  - Viral upper respiratory tract infection [Recovered/Resolved]
  - Oral herpes [Not Recovered/Not Resolved]
  - Arthralgia [Not Recovered/Not Resolved]
  - Pain in extremity [Not Recovered/Not Resolved]
  - Musculoskeletal stiffness [Not Recovered/Not Resolved]
  - Rheumatoid arthritis [Unknown]
  - Nausea [Not Recovered/Not Resolved]

NARRATIVE: CASE EVENT DATE: 20120929
